FAERS Safety Report 24345203 (Version 1)
Quarter: 2024Q3

REPORT INFORMATION
  Report Type: Spontaneous
  Country: US (occurrence: US)
  Receive Date: 20240920
  Receipt Date: 20240920
  Transmission Date: 20241017
  Serious: No
  Sender: JOHNSON AND JOHNSON
  Company Number: US-JNJFOC-20240943481

PATIENT
  Age: 58 Year
  Sex: Female
  Weight: 65.8 kg

DRUGS (20)
  1. OPSUMIT [Suspect]
     Active Substance: MACITENTAN
     Indication: Product used for unknown indication
     Route: 048
  2. TREPROSTINIL SODIUM [Suspect]
     Active Substance: TREPROSTINIL SODIUM
     Indication: Pulmonary arterial hypertension
     Route: 065
     Dates: start: 20240604
  3. LEVOTHYROXINE [Concomitant]
     Active Substance: LEVOTHYROXINE\LEVOTHYROXINE SODIUM
  4. FUROSEMIDE [Concomitant]
     Active Substance: FUROSEMIDE
  5. LIOTHYRONINE [Concomitant]
     Active Substance: LIOTHYRONINE
  6. PREDNISONE [Concomitant]
     Active Substance: PREDNISONE
  7. FOLIC ACID [Concomitant]
     Active Substance: FOLIC ACID
  8. HUMIRA [Concomitant]
     Active Substance: ADALIMUMAB
  9. ALLOPURINOL [Concomitant]
     Active Substance: ALLOPURINOL
  10. BUMETANIDE [Concomitant]
     Active Substance: BUMETANIDE
  11. POTASSIUM BICARBONATE [Concomitant]
     Active Substance: POTASSIUM BICARBONATE
  12. ROPINIROLE HYDROCHLORIDE [Concomitant]
     Active Substance: ROPINIROLE HYDROCHLORIDE
  13. HYDROXYCHLOROQUINE SULFATE [Concomitant]
     Active Substance: HYDROXYCHLOROQUINE SULFATE
  14. ASPIRIN [Concomitant]
     Active Substance: ASPIRIN
  15. SPIRONOLACTONE [Concomitant]
     Active Substance: SPIRONOLACTONE
  16. VITAMIN D3 [Concomitant]
     Active Substance: CHOLECALCIFEROL
  17. DILTIAZEM [Concomitant]
     Active Substance: DILTIAZEM
  18. OMEPRAZOLE [Concomitant]
     Active Substance: OMEPRAZOLE
  19. ACEBUTOLOL [Concomitant]
     Active Substance: ACEBUTOLOL
  20. OXYGEN [Concomitant]
     Active Substance: OXYGEN

REACTIONS (2)
  - Red blood cell count decreased [Unknown]
  - Arthralgia [Unknown]

NARRATIVE: CASE EVENT DATE: 20240101
